FAERS Safety Report 7675320-8 (Version None)
Quarter: 2011Q3

REPORT INFORMATION
  Report Type: 
  Country: None (occurrence: None)
  Receive Date: 20110810
  Receipt Date: 20110805
  Transmission Date: 20111222
  Serious: Yes (Hospitalization, Other)
  Sender: FDA-Public Use
  Company Number: US-ABBOTT-11P-163-0844685-00

PATIENT
  Age: 38 Year
  Sex: Female

DRUGS (2)
  1. PENTASA [Concomitant]
     Indication: PRODUCT USED FOR UNKNOWN INDICATION
  2. HUMIRA [Suspect]
     Indication: CROHN'S DISEASE
     Dates: start: 20110401

REACTIONS (12)
  - HERPES ZOSTER [None]
  - ANAEMIA [None]
  - PALLOR [None]
  - WRONG TECHNIQUE IN DRUG USAGE PROCESS [None]
  - IRON METABOLISM DISORDER [None]
  - VISUAL IMPAIRMENT [None]
  - ASTHENIA [None]
  - HAEMOGLOBIN DECREASED [None]
  - HEADACHE [None]
  - PROCEDURAL HEADACHE [None]
  - URINARY TRACT INFECTION [None]
  - INCORRECT DOSE ADMINISTERED [None]
